FAERS Safety Report 4360709-5 (Version None)
Quarter: 2004Q2

REPORT INFORMATION
  Report Type: 
  Country: None (occurrence: None)
  Receive Date: 20040519
  Receipt Date: 20040519
  Transmission Date: 20050107
  Serious: Yes (Life-Threatening, Hospitalization)
  Sender: FDA-Public Use
  Company Number: None

PATIENT
  Age: 64 Year
  Sex: Male

DRUGS (1)
  1. HEPARIN UNPRACTIONED [Suspect]
     Indication: ANGINA UNSTABLE
     Dosage: 1200 U/HR
     Dates: start: 20040113, end: 20040123

REACTIONS (1)
  - PLATELET COUNT DECREASED [None]
